FAERS Safety Report 24813338 (Version 1)
Quarter: 2025Q1

REPORT INFORMATION
  Report Type: Spontaneous
  Country: US (occurrence: US)
  Receive Date: 20250107
  Receipt Date: 20250107
  Transmission Date: 20250408
  Serious: Yes (Death, Hospitalization)
  Sender: AMGEN
  Company Number: US-AMGEN-USASP2024256458

PATIENT
  Age: 55 Year
  Sex: Female

DRUGS (3)
  1. PREDNISONE [Suspect]
     Active Substance: PREDNISONE
     Indication: Drug reaction with eosinophilia and systemic symptoms
     Route: 065
  2. CYCLOSPORINE [Suspect]
     Active Substance: CYCLOSPORINE
     Indication: Drug reaction with eosinophilia and systemic symptoms
     Route: 065
  3. URSODIOL [Concomitant]
     Active Substance: URSODIOL
     Route: 048

REACTIONS (6)
  - Hodgkin^s disease [Fatal]
  - Septic shock [Fatal]
  - Pneumonia necrotising [Fatal]
  - Drug-induced liver injury [Fatal]
  - Drug reaction with eosinophilia and systemic symptoms [Fatal]
  - Off label use [Unknown]
